FAERS Safety Report 9747602 (Version 1)
Quarter: 2013Q4

REPORT INFORMATION
  Report Type: Spontaneous
  Country: US (occurrence: None)
  Receive Date: 20131211
  Receipt Date: 20131211
  Transmission Date: 20140711
  Serious: Yes (Life-Threatening, Disabling)
  Sender: FDA-Public Use
  Company Number: None

PATIENT
  Age: 36 Year
  Sex: Female
  Weight: 56.7 kg

DRUGS (1)
  1. NUVA RING [Suspect]
     Indication: CONTRACEPTION
     Dosage: 1 RING MONTHLY, VAGINAL
     Dates: start: 20130401, end: 20130930

REACTIONS (2)
  - Deep vein thrombosis [None]
  - Pulmonary embolism [None]
